FAERS Safety Report 9422117 (Version 2)
Quarter: 2013Q3

REPORT INFORMATION
  Report Type: Spontaneous
  Country: US (occurrence: US)
  Receive Date: 20130726
  Receipt Date: 20130729
  Transmission Date: 20140515
  Serious: Yes (Other)
  Sender: FDA-Public Use
  Company Number: US-PFIZER INC-2013216434

PATIENT
  Sex: Male

DRUGS (2)
  1. DEPO-TESTOSTERONE [Suspect]
     Indication: HORMONE REPLACEMENT THERAPY
     Dosage: 200 MG/ML, WEEKLY (ONCE A WEEK)
     Route: 030
     Dates: end: 201307
  2. HCG [Concomitant]
     Dosage: UNK

REACTIONS (3)
  - Product contamination microbial [Unknown]
  - Poor quality drug administered [Unknown]
  - Cellulitis [Unknown]
